FAERS Safety Report 4965550-8 (Version None)
Quarter: 2006Q1

REPORT INFORMATION
  Report Type: 
  Country: None (occurrence: None)
  Receive Date: 20060201
  Receipt Date: 20051009
  Transmission Date: 20060701
  Serious: No
  Sender: FDA-Public Use
  Company Number: 2005PV003187

PATIENT
  Age: 48 Year
  Sex: Male
  Weight: 127.0072 kg

DRUGS (3)
  1. BYETTA [Suspect]
     Indication: DIABETES MELLITUS NON-INSULIN-DEPENDENT
     Dosage: 5 MCG;BID; SC
     Route: 058
     Dates: start: 20050930
  2. GLUCOPHAGE [Concomitant]
  3. NOVOLOG [Concomitant]

REACTIONS (1)
  - BLOOD GLUCOSE INCREASED [None]
